FAERS Safety Report 7605742-2 (Version None)
Quarter: 2011Q3

REPORT INFORMATION
  Report Type: 
  Country: None (occurrence: None)
  Receive Date: 20110713
  Receipt Date: 20110706
  Transmission Date: 20111222
  Serious: Yes (Life-Threatening, Hospitalization)
  Sender: FDA-Public Use
  Company Number: US-US-EMD SERONO, INC.-7061449

PATIENT
  Sex: Female

DRUGS (5)
  1. TYLENOL-500 [Concomitant]
     Indication: PREMEDICATION
  2. UNSPECIFIED MUSCLE RELAXANT [Concomitant]
     Indication: MULTIPLE SCLEROSIS
  3. REBIF [Suspect]
     Indication: MULTIPLE SCLEROSIS
     Route: 058
     Dates: start: 20050524
  4. REBIF [Suspect]
     Route: 058
  5. PERCOCET [Concomitant]
     Indication: PAIN

REACTIONS (7)
  - PNEUMONIA [None]
  - BODY TEMPERATURE DECREASED [None]
  - INAPPROPRIATE SCHEDULE OF DRUG ADMINISTRATION [None]
  - BLOOD PRESSURE DECREASED [None]
  - FATIGUE [None]
  - COMA [None]
  - BLOOD GLUCOSE DECREASED [None]
